FAERS Safety Report 18956616 (Version 3)
Quarter: 2021Q1

REPORT INFORMATION
  Report Type: Report from Study
  Country: None (occurrence: BR)
  Receive Date: 20210301
  Receipt Date: 20210323
  Transmission Date: 20210420
  Serious: Yes (Disabling)
  Sender: FDA-Public Use
  Company Number: BR-ABBVIE-21K-020-3791073-00

PATIENT
  Age: 42 Year
  Sex: Female
  Weight: 63 kg

DRUGS (5)
  1. GABAPENTIN. [Concomitant]
     Active Substance: GABAPENTIN
     Indication: PANCREATITIS
  2. HUMIRA [Suspect]
     Active Substance: ADALIMUMAB
     Indication: CROHN^S DISEASE
     Dosage: LOADING DOSE DAY 1
     Route: 058
     Dates: start: 20210108, end: 20210108
  3. HUMIRA [Suspect]
     Active Substance: ADALIMUMAB
     Dosage: LOADING DOSE DAY 15
     Route: 058
     Dates: start: 20210122, end: 20210122
  4. CIPRO [Concomitant]
     Active Substance: CIPROFLOXACIN HYDROCHLORIDE
     Indication: INFECTION
  5. HUMIRA [Suspect]
     Active Substance: ADALIMUMAB
     Route: 058
     Dates: start: 2021

REACTIONS (21)
  - Psoriatic arthropathy [Recovered/Resolved]
  - Oesophageal pain [Recovering/Resolving]
  - Drug tolerance increased [Unknown]
  - Oral discomfort [Recovering/Resolving]
  - Hypophagia [Recovered/Resolved]
  - Pharyngeal hypoaesthesia [Recovering/Resolving]
  - Hypoaesthesia oral [Recovering/Resolving]
  - Secretion discharge [Not Recovered/Not Resolved]
  - Oropharyngeal pain [Recovering/Resolving]
  - Oropharyngeal candidiasis [Recovering/Resolving]
  - Crohn^s disease [Recovering/Resolving]
  - Purulent discharge [Recovering/Resolving]
  - Oral pain [Recovering/Resolving]
  - Constipation [Recovered/Resolved]
  - Skin discolouration [Not Recovered/Not Resolved]
  - Tongue discolouration [Not Recovered/Not Resolved]
  - Gingival discolouration [Not Recovered/Not Resolved]
  - Skin exfoliation [Recovering/Resolving]
  - Therapeutic product effect incomplete [Unknown]
  - Aphasia [Recovered/Resolved]
  - Immunodeficiency [Recovering/Resolving]

NARRATIVE: CASE EVENT DATE: 2021
